FAERS Safety Report 23147240 (Version 2)
Quarter: 2023Q4

REPORT INFORMATION
  Report Type: Spontaneous
  Country: US (occurrence: None)
  Receive Date: 20231106
  Receipt Date: 20231115
  Transmission Date: 20240109
  Serious: Yes (Other)
  Sender: FDA-Public Use
  Company Number: 2023A246778

PATIENT

DRUGS (2)
  1. PULMICORT TURBUHALER [Suspect]
     Active Substance: BUDESONIDE
     Dosage: 180 MG, UNKNOWN FREQUENCY
     Route: 055
  2. SYMBICORT [Suspect]
     Active Substance: BUDESONIDE\FORMOTEROL FUMARATE DIHYDRATE
     Dosage: 160 MG, UNKNOWN FREQUENCY UNKNOWN
     Route: 055

REACTIONS (4)
  - Milk allergy [Unknown]
  - Dyspnoea [Unknown]
  - Fatigue [Unknown]
  - Drug ineffective [Unknown]
